FAERS Safety Report 19955223 (Version 1)
Quarter: 2021Q4

REPORT INFORMATION
  Report Type: Spontaneous
  Country: TW (occurrence: TW)
  Receive Date: 20211014
  Receipt Date: 20211014
  Transmission Date: 20220303
  Serious: Yes (Other)
  Sender: FDA-Public Use
  Company Number: TW-002147023-NVSC2021TW226961

PATIENT
  Age: 69 Year
  Sex: Male

DRUGS (15)
  1. LUCENTIS [Suspect]
     Active Substance: RANIBIZUMAB
     Indication: Age-related macular degeneration
     Dosage: 1#
     Route: 065
     Dates: start: 20210608
  2. EYLEA [Suspect]
     Active Substance: AFLIBERCEPT
     Indication: Product used for unknown indication
     Dosage: 3 DF, FA APPLY OD EYLEA 1-3, OD PSTK
     Route: 065
     Dates: start: 20171023
  3. EYLEA [Suspect]
     Active Substance: AFLIBERCEPT
     Dosage: OD IVIE NIH 1#
     Route: 065
     Dates: start: 20171113
  4. EYLEA [Suspect]
     Active Substance: AFLIBERCEPT
     Dosage: UNK, NIH 4# (T+E)
     Route: 065
     Dates: start: 20180226
  5. EYLEA [Suspect]
     Active Substance: AFLIBERCEPT
     Dosage: UNK, OD, NIH 5# (T+E)
     Route: 065
     Dates: start: 20180416
  6. EYLEA [Suspect]
     Active Substance: AFLIBERCEPT
     Dosage: UNK, OD IVIE CHARGE 1#
     Route: 065
     Dates: start: 20181231
  7. EYLEA [Suspect]
     Active Substance: AFLIBERCEPT
     Dosage: UNK, BID, OD IVIE (1+1)
     Route: 065
     Dates: start: 20190128
  8. EYLEA [Suspect]
     Active Substance: AFLIBERCEPT
     Dosage: UNK, OD IVIE CHARGE 1#
     Route: 065
     Dates: start: 20190329
  9. EYLEA [Suspect]
     Active Substance: AFLIBERCEPT
     Dosage: OD IVIE CHARGE 1# (T+E, +8WKS, 2 LEFT)
     Route: 065
     Dates: start: 20190524
  10. EYLEA [Suspect]
     Active Substance: AFLIBERCEPT
     Dosage: OD IVIE (1+1, 1 LEFT, 12 WEEKS
     Route: 065
     Dates: start: 20190719
  11. EYLEA [Suspect]
     Active Substance: AFLIBERCEPT
     Dosage: OD IVIE (1+1)
     Route: 065
     Dates: start: 20191011
  12. EYLEA [Suspect]
     Active Substance: AFLIBERCEPT
     Dosage: OD IVIE CHARGE 1# (2+1 PLAN), Q8W
     Route: 065
     Dates: start: 20200110
  13. EYLEA [Suspect]
     Active Substance: AFLIBERCEPT
     Dosage: OD IVIE CHARGE 2#
     Route: 065
     Dates: start: 20200320
  14. EYLEA [Suspect]
     Active Substance: AFLIBERCEPT
     Dosage: OD IVIE (2+1, Q8)
     Route: 065
     Dates: start: 20200515
  15. EYLEA [Suspect]
     Active Substance: AFLIBERCEPT
     Dosage: OD, IVIE
     Route: 065
     Dates: start: 20210720

REACTIONS (2)
  - Macular degeneration [Unknown]
  - Product dose omission issue [Unknown]

NARRATIVE: CASE EVENT DATE: 20180521
